FAERS Safety Report 16273682 (Version 1)
Quarter: 2019Q2

REPORT INFORMATION
  Report Type: Spontaneous
  Country: US (occurrence: US)
  Receive Date: 20190503
  Receipt Date: 20190503
  Transmission Date: 20190711
  Serious: No
  Sender: FDA-Public Use
  Company Number: US-RADIUS HEALTH INC.-2019US000522

PATIENT
  Sex: Female

DRUGS (1)
  1. TYMLOS [Suspect]
     Active Substance: ABALOPARATIDE
     Indication: OSTEOPOROSIS POSTMENOPAUSAL
     Dosage: 80 MCG, DAILY
     Route: 058
     Dates: start: 20181219, end: 20190410

REACTIONS (9)
  - Erythema [Unknown]
  - Ocular hyperaemia [Unknown]
  - Fatigue [Unknown]
  - Influenza like illness [Unknown]
  - Pruritus [Recovered/Resolved]
  - Constipation [Unknown]
  - Malaise [Unknown]
  - Hot flush [Unknown]
  - Urticaria [Recovered/Resolved]
